FAERS Safety Report 16057074 (Version 1)
Quarter: 2019Q2

REPORT INFORMATION
  Report Type: Spontaneous
  Country: US (occurrence: US)
  Receive Date: 20190311
  Receipt Date: 20190311
  Transmission Date: 20190711
  Serious: Yes (Disabling)
  Sender: FDA-Public Use
  Company Number: None

PATIENT
  Age: 30 Year
  Sex: Female
  Weight: 71.55 kg

DRUGS (2)
  1. INVEGA SUSTENNA [Suspect]
     Active Substance: PALIPERIDONE PALMITATE
     Indication: BIPOLAR DISORDER
     Dosage: ?          OTHER FREQUENCY:ONCE A MONTH INJEC;OTHER ROUTE:INJECTED?
     Dates: start: 20180401, end: 20180801
  2. VRAYLAR [Concomitant]
     Active Substance: CARIPRAZINE

REACTIONS (2)
  - Amenorrhoea [None]
  - Weight increased [None]

NARRATIVE: CASE EVENT DATE: 20180401
